FAERS Safety Report 9640186 (Version 1)
Quarter: 2013Q4

REPORT INFORMATION
  Report Type: Spontaneous
  Country: US (occurrence: US)
  Receive Date: 20131023
  Receipt Date: 20131023
  Transmission Date: 20140711
  Serious: No
  Sender: FDA-Public Use
  Company Number: US-PFIZER INC-2013300456

PATIENT
  Age: 59 Year
  Sex: Female
  Weight: 41.72 kg

DRUGS (2)
  1. NEURONTIN [Suspect]
     Indication: RESTLESS LEGS SYNDROME
     Dosage: ONE TO THREE 300MG CAPSULES, AS NEEDED
     Route: 048
  2. CYMBALTA [Concomitant]
     Dosage: UNK

REACTIONS (5)
  - Off label use [Unknown]
  - Muscle twitching [Not Recovered/Not Resolved]
  - Pain [Not Recovered/Not Resolved]
  - Drug ineffective for unapproved indication [Unknown]
  - Pain in extremity [Not Recovered/Not Resolved]
